FAERS Safety Report 19405066 (Version 1)
Quarter: 2021Q2

REPORT INFORMATION
  Report Type: Spontaneous
  Country: US (occurrence: US)
  Receive Date: 20210611
  Receipt Date: 20210611
  Transmission Date: 20210717
  Serious: Yes (Other)
  Sender: FDA-Public Use
  Company Number: None

PATIENT
  Age: 50 Year
  Sex: Female
  Weight: 60.1 kg

DRUGS (8)
  1. IBUPROFEN 600 MG Q6H PRN [Concomitant]
     Dates: start: 20200909, end: 20210506
  2. FERRLECIT [Suspect]
     Active Substance: SODIUM FERRIC GLUCONATE COMPLEX
     Indication: ANAEMIA
     Route: 041
  3. PANTOPRAZOLE 40 MG DR QD [Concomitant]
     Dates: start: 20210527
  4. CELECOXIB 200 MG BID [Concomitant]
     Dates: start: 20210504
  5. ARMOUR THYROID 30 MG QD [Concomitant]
     Dates: start: 20160224
  6. FERRLECIT [Suspect]
     Active Substance: SODIUM FERRIC GLUCONATE COMPLEX
     Indication: IRON DEFICIENCY
     Route: 041
  7. BUPIVICANE PF 0.25% INJECTION [Concomitant]
     Dates: start: 20210426, end: 20210426
  8. MELOXICAM 7.5 MG QD [Concomitant]
     Dates: start: 20210331, end: 20210414

REACTIONS (9)
  - Hyperhidrosis [None]
  - Head discomfort [None]
  - Palpitations [None]
  - Hypotension [None]
  - Chest discomfort [None]
  - Unresponsive to stimuli [None]
  - Anaphylactic reaction [None]
  - Headache [None]
  - Dizziness [None]

NARRATIVE: CASE EVENT DATE: 20210609
